FAERS Safety Report 22101588 (Version 1)
Quarter: 2023Q1

REPORT INFORMATION
  Report Type: Spontaneous
  Country: BF (occurrence: BF)
  Receive Date: 20230316
  Receipt Date: 20230316
  Transmission Date: 20230418
  Serious: Yes (Death)
  Sender: FDA-Public Use
  Company Number: BF-002147023-NVSC2023BF060241

PATIENT
  Sex: Female

DRUGS (1)
  1. GLIVEC [Suspect]
     Active Substance: IMATINIB MESYLATE
     Indication: Chronic myeloid leukaemia
     Dosage: 100 MG (100 MG X 4)
     Route: 065

REACTIONS (4)
  - General physical health deterioration [Fatal]
  - Anaemia [Fatal]
  - Hyperleukocytosis [Fatal]
  - Bicytopenia [Fatal]
